FAERS Safety Report 24421228 (Version 1)
Quarter: 2024Q4

REPORT INFORMATION
  Report Type: Spontaneous
  Country: US (occurrence: US)
  Receive Date: 20241010
  Receipt Date: 20241010
  Transmission Date: 20250114
  Serious: Yes (Life-Threatening)
  Sender: ACCORD
  Company Number: US-MLMSERVICE-20240923-PI202586-00165-1

PATIENT
  Age: 77 Year
  Sex: Female

DRUGS (2)
  1. GEMCITABINE [Suspect]
     Active Substance: GEMCITABINE
     Indication: Adenocarcinoma pancreas
     Dosage: CURRENTLY ON CYCLE 2 DAY 15
  2. ABRAXANE [Concomitant]
     Active Substance: PACLITAXEL
     Indication: Adenocarcinoma pancreas
     Dosage: CURRENTLY ON CYCLE 2 DAY 15

REACTIONS (1)
  - Pulmonary toxicity [Recovering/Resolving]
